FAERS Safety Report 10608976 (Version 2)
Quarter: 2015Q2

REPORT INFORMATION
  Report Type: Report from Study
  Country: TH (occurrence: TH)
  Receive Date: 20141125
  Receipt Date: 20150407
  Transmission Date: 20150821
  Serious: Yes (Death)
  Sender: FDA-Public Use
  Company Number: TH-ASTELLAS-2014US018355

PATIENT
  Age: 58 Year
  Sex: Female

DRUGS (1)
  1. ERLOTINIB [Suspect]
     Active Substance: ERLOTINIB
     Indication: NON-SMALL CELL LUNG CANCER
     Dosage: 150 MG, ONCE DAILY (2ND LINE OR LATER LINE NSCLC)
     Route: 048
     Dates: start: 20140610, end: 20141121

REACTIONS (1)
  - Death [Fatal]

NARRATIVE: CASE EVENT DATE: 20141121
